FAERS Safety Report 5032491-X (Version None)
Quarter: 2006Q2

REPORT INFORMATION
  Report Type: 
  Country: None (occurrence: None)
  Receive Date: 20060621
  Receipt Date: 20060621
  Transmission Date: 20061013
  Serious: Yes (Other)
  Sender: FDA-Public Use
  Company Number: None

PATIENT
  Sex: Female
  Weight: 58.9676 kg

DRUGS (1)
  1. DEPO-PROVERA [Suspect]
     Indication: CONTRACEPTION
     Dosage: 150 MG X 1 IM
     Route: 030
     Dates: start: 20060619

REACTIONS (4)
  - CHILLS [None]
  - PAIN [None]
  - PAIN IN EXTREMITY [None]
  - SWELLING [None]
